FAERS Safety Report 5691220-7 (Version None)
Quarter: 2008Q2

REPORT INFORMATION
  Report Type: 
  Country: None (occurrence: None)
  Receive Date: 20080402
  Receipt Date: 20080207
  Transmission Date: 20081010
  Serious: No
  Sender: FDA-Public Use
  Company Number: US-BAYER-200813534NA

PATIENT
  Sex: Male

DRUGS (2)
  1. MIRENA [Suspect]
     Indication: CONTRACEPTION
  2. VERAPAMIL [Concomitant]
     Indication: HYPERTENSION

REACTIONS (1)
  - GENITAL PAIN [None]
